FAERS Safety Report 15891125 (Version 3)
Quarter: 2025Q4

REPORT INFORMATION
  Report Type: Spontaneous
  Country: EU (occurrence: EU)
  Receive Date: 20190130
  Receipt Date: 20251006
  Transmission Date: 20260117
  Serious: Yes (Other)
  Sender: MYLAN
  Company Number: EU-NOVPHSZ-PHHY2018FR047853

PATIENT
  Age: 40 Year
  Sex: Female

DRUGS (16)
  1. MYCOPHENOLATE MOFETIL [Suspect]
     Active Substance: MYCOPHENOLATE MOFETIL
     Indication: Immunosuppressant drug therapy
     Dosage: 500 MILLIGRAM, BID (1000 MG, QD)
  2. MYCOPHENOLATE MOFETIL [Suspect]
     Active Substance: MYCOPHENOLATE MOFETIL
     Indication: Renal transplant
     Dosage: 500 MILLIGRAM, BID (1000 MG, QD)
  3. MYCOPHENOLATE MOFETIL [Suspect]
     Active Substance: MYCOPHENOLATE MOFETIL
     Dosage: 500 MILLIGRAM, BID (1000 MG, QD)
     Route: 065
  4. MYCOPHENOLATE MOFETIL [Suspect]
     Active Substance: MYCOPHENOLATE MOFETIL
     Dosage: 500 MILLIGRAM, BID (1000 MG, QD)
     Route: 065
  5. MYCOPHENOLATE MOFETIL [Suspect]
     Active Substance: MYCOPHENOLATE MOFETIL
     Dosage: 1000 MILLIGRAM, QD
  6. MYCOPHENOLATE MOFETIL [Suspect]
     Active Substance: MYCOPHENOLATE MOFETIL
     Dosage: 1000 MILLIGRAM, QD
  7. MYCOPHENOLATE MOFETIL [Suspect]
     Active Substance: MYCOPHENOLATE MOFETIL
     Dosage: 1000 MILLIGRAM, QD
     Route: 065
  8. MYCOPHENOLATE MOFETIL [Suspect]
     Active Substance: MYCOPHENOLATE MOFETIL
     Dosage: 1000 MILLIGRAM, QD
     Route: 065
  9. BELATACEPT [Suspect]
     Active Substance: BELATACEPT
     Indication: Renal transplant
     Dosage: 5 MILLIGRAM/KILOGRAM, DOSE WAS ADAPTED EACH MONTH TO HER WEIGHT
  10. BELATACEPT [Suspect]
     Active Substance: BELATACEPT
     Dosage: 5 MILLIGRAM/KILOGRAM, DOSE WAS ADAPTED EACH MONTH TO HER WEIGHT
  11. BELATACEPT [Suspect]
     Active Substance: BELATACEPT
     Dosage: 5 MILLIGRAM/KILOGRAM, DOSE WAS ADAPTED EACH MONTH TO HER WEIGHT
     Route: 065
  12. BELATACEPT [Suspect]
     Active Substance: BELATACEPT
     Dosage: 5 MILLIGRAM/KILOGRAM, DOSE WAS ADAPTED EACH MONTH TO HER WEIGHT
     Route: 065
  13. BELATACEPT [Suspect]
     Active Substance: BELATACEPT
     Dosage: UNK
  14. BELATACEPT [Suspect]
     Active Substance: BELATACEPT
     Dosage: UNK
  15. BELATACEPT [Suspect]
     Active Substance: BELATACEPT
     Dosage: UNK
     Route: 065
  16. BELATACEPT [Suspect]
     Active Substance: BELATACEPT
     Dosage: UNK
     Route: 065

REACTIONS (2)
  - Transplant rejection [Recovered/Resolved]
  - Kidney transplant rejection [Recovered/Resolved]
